FAERS Safety Report 10234613 (Version 6)
Quarter: 2016Q1

REPORT INFORMATION
  Report Type: Report from Study
  Country: CZ (occurrence: CZ)
  Receive Date: 20140613
  Receipt Date: 20160314
  Transmission Date: 20160525
  Serious: Yes (Hospitalization)
  Sender: FDA-Public Use
  Company Number: CZ-ROCHE-1127018

PATIENT
  Age: 38 Year
  Sex: Female
  Weight: 68 kg

DRUGS (15)
  1. VINCRISTINE [Suspect]
     Active Substance: VINCRISTINE
     Indication: B-CELL LYMPHOMA
     Dosage: DATE OF MOST RECENT DOSE: 30/AUG/2012.
     Route: 040
     Dates: start: 20120609
  2. OMEPRAZOLUM [Concomitant]
     Indication: NAUSEA
     Route: 065
     Dates: start: 20120608, end: 20141114
  3. LACTOBACILLUS [Concomitant]
     Active Substance: LACTOBACILLUS ACIDOPHILUS
     Indication: PROPHYLAXIS
     Route: 065
     Dates: start: 20120808, end: 20141114
  4. PREDNISONE. [Suspect]
     Active Substance: PREDNISONE
     Indication: B-CELL LYMPHOMA
     Dosage: DATE OF MOST RECENT DOSE: 30/AUG/2012 (100 MG).
     Route: 065
     Dates: start: 20120608
  5. KALIUM CHLORATUM [Concomitant]
     Active Substance: POTASSIUM CHLORIDE
     Indication: HYPOKALAEMIA
     Route: 065
     Dates: start: 20120610
  6. CYCLOPHOSPHAMIDE. [Suspect]
     Active Substance: CYCLOPHOSPHAMIDE
     Indication: B-CELL LYMPHOMA
     Dosage: DATE OF MOST RECENT DOSE: 30/AUG/2012 (1275 MG)
     Route: 042
     Dates: start: 20120609
  7. METOCLOPRAMIDI HYDROCHLORIDUM [Concomitant]
     Indication: NAUSEA
     Route: 065
     Dates: start: 20120608, end: 20141114
  8. NEUPOGEN [Concomitant]
     Active Substance: FILGRASTIM
     Indication: PROPHYLAXIS
     Route: 065
     Dates: start: 20120818, end: 20120820
  9. ROXITHROMYCIN [Concomitant]
     Active Substance: ROXITHROMYCIN
     Indication: SINUSITIS
     Route: 065
     Dates: start: 20121029
  10. DOXORUBICIN [Suspect]
     Active Substance: DOXORUBICIN
     Indication: B-CELL LYMPHOMA
     Dosage: DATE OF MOST RECENT DOSE: 31/AUG/2012 (85 MG).
     Route: 042
     Dates: start: 20120609
  11. ALLOPURINOL. [Concomitant]
     Active Substance: ALLOPURINOL
     Indication: PROPHYLAXIS
     Route: 065
     Dates: start: 20120608, end: 20120810
  12. GRANISETRONI HYDROCHLORIDUM [Concomitant]
     Indication: NAUSEA
     Route: 065
     Dates: start: 20120608, end: 20141114
  13. PARACETAMOLUM [Concomitant]
     Route: 065
     Dates: start: 20120611, end: 20141114
  14. TRAMADOL HYDROCHLORIDE. [Concomitant]
     Active Substance: TRAMADOL HYDROCHLORIDE
     Indication: BACK PAIN
     Route: 065
     Dates: start: 20130107, end: 20130108
  15. OBINUTUZUMAB [Suspect]
     Active Substance: OBINUTUZUMAB
     Indication: B-CELL LYMPHOMA
     Dosage: DATE OF THE MOST RECENT DOSE: 31/AUG/2012 (250 ML 1000MG/ML).
     Route: 042
     Dates: start: 20120608

REACTIONS (1)
  - Febrile neutropenia [Recovered/Resolved]

NARRATIVE: CASE EVENT DATE: 20120909
